FAERS Safety Report 7290726-7 (Version None)
Quarter: 2011Q1

REPORT INFORMATION
  Report Type: 
  Country: None (occurrence: None)
  Receive Date: 20110214
  Receipt Date: 20110131
  Transmission Date: 20110831
  Serious: Yes (Hospitalization)
  Sender: FDA-Public Use
  Company Number: US-CELGENEUS-163-21880-11020047

PATIENT
  Age: 48 Year
  Sex: Male

DRUGS (8)
  1. REVLIMID [Suspect]
     Indication: DIFFUSE LARGE B-CELL LYMPHOMA
     Route: 048
     Dates: start: 20100421
  2. CENTRUM [Concomitant]
     Indication: SUPPLEMENTATION THERAPY
     Route: 048
  3. OXYCODONE HCL [Concomitant]
     Indication: PAIN
     Route: 048
  4. DIGOXIN [Concomitant]
     Route: 065
  5. METOCLOPRAMIDE HCL [Concomitant]
     Indication: VOMITING
  6. RITUXAN [Suspect]
     Indication: DIFFUSE LARGE B-CELL LYMPHOMA
     Route: 065
  7. METOCLOPRAMIDE HCL [Concomitant]
     Indication: NAUSEA
     Route: 048
  8. COREG [Concomitant]
     Route: 065

REACTIONS (2)
  - BLOOD CALCIUM INCREASED [None]
  - BLOOD CREATININE INCREASED [None]
